FAERS Safety Report 4348973-X (Version None)
Quarter: 2004Q2

REPORT INFORMATION
  Report Type: 
  Country: None (occurrence: None)
  Receive Date: 20040423
  Receipt Date: 20040414
  Transmission Date: 20050107
  Serious: Yes (Hospitalization)
  Sender: FDA-Public Use
  Company Number: 2004-04-0621

PATIENT
  Age: 74 Year
  Sex: Female

DRUGS (2)
  1. NAQUA [Suspect]
     Indication: HYPERTENSION
     Dosage: ORAL
     Route: 048
  2. TENORMIN [Suspect]
     Indication: HYPERTENSION

REACTIONS (2)
  - LYMPHOCYTE STIMULATION TEST POSITIVE [None]
  - TOXIC SKIN ERUPTION [None]
